FAERS Safety Report 5637915-2 (Version None)
Quarter: 2008Q1

REPORT INFORMATION
  Report Type: 
  Country: None (occurrence: None)
  Receive Date: 20080222
  Receipt Date: 20080222
  Transmission Date: 20080703
  Serious: Yes (Hospitalization)
  Sender: FDA-Public Use
  Company Number: None

PATIENT
  Age: 42 Year
  Sex: Female
  Weight: 71 kg

DRUGS (2)
  1. PHENYTOIN EXTENDED REL 100MG [Suspect]
     Indication: CONVULSION
     Dosage: 100MG BRKFST + SUPPER PO; LONG TIME?
     Route: 048
  2. PHENYTOIN EXTENDED REL 200MG [Suspect]
     Dosage: 200MG AT LUNCH PO
     Route: 048

REACTIONS (6)
  - ASTHENIA [None]
  - BLOOD GLUCOSE DECREASED [None]
  - BLOOD GLUCOSE INCREASED [None]
  - HEADACHE [None]
  - NAUSEA [None]
  - VISION BLURRED [None]
